FAERS Safety Report 24799167 (Version 2)
Quarter: 2025Q1

REPORT INFORMATION
  Report Type: Spontaneous
  Country: US (occurrence: US)
  Receive Date: 20250102
  Receipt Date: 20250113
  Transmission Date: 20250409
  Serious: Yes (Hospitalization, Disabling)
  Sender: TEVA
  Company Number: US-TEVA-VS-3280145

PATIENT
  Age: 48 Year
  Sex: Female

DRUGS (3)
  1. METFORMIN [Suspect]
     Active Substance: METFORMIN HYDROCHLORIDE
     Indication: Type 2 diabetes mellitus
     Route: 048
  2. ROSUVASTATIN [Concomitant]
     Active Substance: ROSUVASTATIN
     Indication: Hyperlipidaemia
     Route: 065
  3. LISINOPRIL [Concomitant]
     Active Substance: LISINOPRIL
     Indication: Hypertension
     Route: 065

REACTIONS (6)
  - Lactic acidosis [Unknown]
  - Hyperkalaemia [Unknown]
  - Leukocytosis [Unknown]
  - Blindness [Unknown]
  - Metabolic acidosis [Unknown]
  - Acute kidney injury [Unknown]
